FAERS Safety Report 12000661 (Version 1)
Quarter: 2016Q1

REPORT INFORMATION
  Report Type: Spontaneous
  Country: US (occurrence: US)
  Receive Date: 20160204
  Receipt Date: 20160204
  Transmission Date: 20160526
  Serious: No
  Sender: FDA-Public Use
  Company Number: US-PFIZER INC-2014050847

PATIENT
  Sex: Male

DRUGS (2)
  1. COUMADINE [Concomitant]
     Active Substance: WARFARIN SODIUM
  2. TIKOSYN [Suspect]
     Active Substance: DOFETILIDE
     Dosage: UNK

REACTIONS (1)
  - Arrhythmia [Unknown]
